FAERS Safety Report 4937080-0 (Version None)
Quarter: 2006Q1

REPORT INFORMATION
  Report Type: 
  Country: None (occurrence: None)
  Receive Date: 20060307
  Receipt Date: 20060307
  Transmission Date: 20060701
  Serious: Yes (Other)
  Sender: FDA-Public Use
  Company Number: None

PATIENT
  Age: 70 Year
  Sex: Female
  Weight: 59.8748 kg

DRUGS (1)
  1. FENTANYL [Suspect]
     Indication: BACK PAIN
     Dosage: 25 MCG/HR APPLY Q 72
     Dates: start: 20050602, end: 20050702

REACTIONS (2)
  - INADEQUATE ANALGESIA [None]
  - THERAPY NON-RESPONDER [None]
